FAERS Safety Report 15981403 (Version 2)
Quarter: 2019Q1

REPORT INFORMATION
  Report Type: Spontaneous
  Country: CH (occurrence: CH)
  Receive Date: 20190219
  Receipt Date: 20190313
  Transmission Date: 20190418
  Serious: Yes (Hospitalization)
  Sender: FDA-Public Use
  Company Number: CH-JNJFOC-20190222879

PATIENT
  Age: 85 Year
  Sex: Female

DRUGS (5)
  1. MERONEM [Concomitant]
     Active Substance: MEROPENEM
     Route: 065
     Dates: start: 201901
  2. ELIQUIS [Concomitant]
     Active Substance: APIXABAN
     Indication: ATRIAL FIBRILLATION
     Route: 065
  3. CORDARONE [Concomitant]
     Active Substance: AMIODARONE HYDROCHLORIDE
     Route: 065
     Dates: end: 201901
  4. ACETYLSALICYLIC ACID [Suspect]
     Active Substance: ASPIRIN
     Indication: PRODUCT USED FOR UNKNOWN INDICATION
     Route: 065
     Dates: end: 20190108
  5. XARELTO [Suspect]
     Active Substance: RIVAROXABAN
     Indication: ATRIAL FIBRILLATION
     Route: 048
     Dates: start: 20190109, end: 20190111

REACTIONS (12)
  - Fall [Unknown]
  - Pyrexia [Unknown]
  - Haemarthrosis [Unknown]
  - Subcutaneous haematoma [Unknown]
  - Dyspnoea [Unknown]
  - Arthralgia [Unknown]
  - Contusion [Unknown]
  - Post-traumatic pain [Unknown]
  - Syncope [Unknown]
  - General physical health deterioration [Unknown]
  - Superinfection [Unknown]
  - Inflammatory marker increased [Unknown]

NARRATIVE: CASE EVENT DATE: 20181228
